FAERS Safety Report 4477710-3 (Version None)
Quarter: 2004Q4

REPORT INFORMATION
  Report Type: 
  Country: None (occurrence: None)
  Receive Date: 20041014
  Receipt Date: 20040928
  Transmission Date: 20050328
  Serious: Yes (Other)
  Sender: FDA-Public Use
  Company Number: 205427

PATIENT
  Age: 37 Year
  Sex: Female

DRUGS (6)
  1. AVONEX [Suspect]
     Indication: MULTIPLE SCLEROSIS
     Dates: start: 20040601
  2. WELLBUTRIN [Concomitant]
  3. PROVIGIL [Concomitant]
  4. ZANAFLEX [Concomitant]
  5. MULTI-VITAMINS [Concomitant]
  6. FOSAMAX [Concomitant]

REACTIONS (5)
  - IMMUNOLOGY TEST ABNORMAL [None]
  - LARYNGEAL ULCERATION [None]
  - MUCOSAL INFLAMMATION [None]
  - PEMPHIGOID [None]
  - TONSILLAR ULCER [None]
